FAERS Safety Report 8736621 (Version 2)
Quarter: 2012Q4

REPORT INFORMATION
  Report Type: Report from Study
  Country: FR (occurrence: FR)
  Receive Date: 20120822
  Receipt Date: 20121130
  Transmission Date: 20130627
  Serious: Yes (Hospitalization)
  Sender: FDA-Public Use
  Company Number: FR-PFIZER INC-2012195410

PATIENT
  Age: 62 Year
  Sex: Male
  Weight: 83 kg

DRUGS (1)
  1. SUTENT [Suspect]
     Indication: METASTATIC RENAL CARCINOMA
     Dosage: 50 mg, 1x/day
     Route: 048
     Dates: start: 20120320

REACTIONS (1)
  - General physical health deterioration [Recovered/Resolved]
